FAERS Safety Report 26120732 (Version 1)
Quarter: 2025Q4

REPORT INFORMATION
  Report Type: Spontaneous
  Country: US (occurrence: US)
  Receive Date: 20251204
  Receipt Date: 20251204
  Transmission Date: 20260118
  Serious: No
  Sender: CELLTRION
  Company Number: US-CELLTRION INC.-2025US039285

PATIENT

DRUGS (8)
  1. ADALIMUMAB [Suspect]
     Active Substance: ADALIMUMAB
     Indication: Hyperkeratosis
     Dosage: UNK
  2. CALCIPOTRIENE [Concomitant]
     Active Substance: CALCIPOTRIENE
     Indication: Hyperkeratosis
     Dosage: UNK
  3. CYCLOSPORINE [Concomitant]
     Active Substance: CYCLOSPORINE
     Indication: Hyperkeratosis
     Dosage: UNK
  4. METHOTREXATE [Concomitant]
     Active Substance: METHOTREXATE
     Indication: Hyperkeratosis
     Dosage: UNK
     Route: 058
  5. ACITRETIN [Concomitant]
     Active Substance: ACITRETIN
     Indication: Hyperkeratosis
     Dosage: UNK
  6. ANAKINRA [Concomitant]
     Active Substance: ANAKINRA
     Indication: Hyperkeratosis
     Dosage: UNK
  7. ETANERCEPT [Concomitant]
     Active Substance: ETANERCEPT
     Indication: Hyperkeratosis
     Dosage: UNK
  8. CHLORHEXIDINE [Concomitant]
     Active Substance: CHLORHEXIDINE
     Indication: Hyperkeratosis
     Dosage: UNK

REACTIONS (1)
  - Drug ineffective for unapproved indication [Unknown]
